FAERS Safety Report 24928493 (Version 1)
Quarter: 2025Q1

REPORT INFORMATION
  Report Type: Other
  Country: CA (occurrence: CA)
  Receive Date: 20250205
  Receipt Date: 20250205
  Transmission Date: 20250408
  Serious: No
  Sender: TOLMAR
  Company Number: CA-20250112-556d5c

PATIENT
  Sex: Male

DRUGS (4)
  1. ELIGARD [Suspect]
     Active Substance: LEUPROLIDE ACETATE
     Indication: Prostate cancer
     Dosage: 22.5MG EVERY 3 MONTHS
     Route: 058
     Dates: start: 20210330
  2. ELIGARD [Suspect]
     Active Substance: LEUPROLIDE ACETATE
     Indication: Prostate cancer
     Dosage: 30MG EVERY 4 MONTHS
     Route: 058
     Dates: start: 20221223
  3. ELIGARD [Suspect]
     Active Substance: LEUPROLIDE ACETATE
     Dosage: 30MG EVERY 4 MONTHS
     Route: 058
     Dates: start: 20250112
  4. ELIGARD [Suspect]
     Active Substance: LEUPROLIDE ACETATE
     Indication: Prostate cancer

REACTIONS (3)
  - Weight decreased [Unknown]
  - Fatigue [Unknown]
  - Asthenia [Unknown]
